FAERS Safety Report 7753638-8 (Version None)
Quarter: 2011Q3

REPORT INFORMATION
  Report Type: 
  Country: None (occurrence: None)
  Receive Date: 20110915
  Receipt Date: 20110905
  Transmission Date: 20111222
  Serious: Yes (Other)
  Sender: FDA-Public Use
  Company Number: FR-GLAXOSMITHKLINE-B0747246A

PATIENT
  Age: 31 Year
  Sex: Female

DRUGS (1)
  1. SORIATANE [Suspect]
     Indication: KERATOSIS FOLLICULAR
     Dosage: 10MG PER DAY
     Route: 048

REACTIONS (3)
  - FATIGUE [None]
  - APATHY [None]
  - IRRITABILITY [None]
